FAERS Safety Report 7145779-3 (Version None)
Quarter: 2010Q4

REPORT INFORMATION
  Report Type: 
  Country: None (occurrence: None)
  Receive Date: 20101208
  Receipt Date: 20101124
  Transmission Date: 20110411
  Serious: Yes (Other)
  Sender: FDA-Public Use
  Company Number: A0849266A

PATIENT
  Sex: Male

DRUGS (1)
  1. AVANDIA [Suspect]
     Indication: DIABETES MELLITUS
     Dosage: 4MG PER DAY
     Route: 048
     Dates: start: 20011001, end: 20070501

REACTIONS (3)
  - ACTIVITIES OF DAILY LIVING IMPAIRED [None]
  - FEAR [None]
  - MYOCARDIAL INFARCTION [None]
